FAERS Safety Report 14174775 (Version 2)
Quarter: 2018Q1

REPORT INFORMATION
  Report Type: Spontaneous
  Country: US (occurrence: US)
  Receive Date: 20171109
  Receipt Date: 20180112
  Transmission Date: 20180508
  Serious: No
  Sender: FDA-Public Use
  Company Number: US-B.I. PHARMACEUTICALS,INC./RIDGEFIELD-2017-BI-060386

PATIENT
  Sex: Male

DRUGS (1)
  1. FLOMAX [Suspect]
     Active Substance: TAMSULOSIN HYDROCHLORIDE
     Indication: URINARY TRACT DISORDER
     Dosage: 1-2 CAPSULES DAILY;  FORM STRENGTH: 0.4 MG; ACTION(S) TAKEN WITH PRODUCT: DRUG WITHDRAWN
     Route: 048

REACTIONS (3)
  - Drug ineffective [Unknown]
  - Constipation [Not Recovered/Not Resolved]
  - Arthralgia [Unknown]
